FAERS Safety Report 19272380 (Version 1)
Quarter: 2021Q2

REPORT INFORMATION
  Report Type: Spontaneous
  Country: US (occurrence: US)
  Receive Date: 20210518
  Receipt Date: 20210518
  Transmission Date: 20210717
  Serious: Yes (Other)
  Sender: FDA-Public Use
  Company Number: US-BAUSCH-BL-2021-016773

PATIENT
  Age: 62 Year
  Sex: Male
  Weight: 127 kg

DRUGS (17)
  1. CARVEDILOL. [Concomitant]
     Active Substance: CARVEDILOL
     Indication: PRODUCT USED FOR UNKNOWN INDICATION
     Route: 048
  2. LOPERAMIDE [Concomitant]
     Active Substance: LOPERAMIDE
     Indication: DIARRHOEA
     Dosage: AS NEEDED
     Route: 048
  3. WARFARIN [Interacting]
     Active Substance: WARFARIN
     Indication: AORTIC ANEURYSM
     Dosage: ON DAY 1
     Route: 065
  4. REMDESIVIR. [Interacting]
     Active Substance: REMDESIVIR
     Dosage: CONTINUED AT MAINTENANCE DOSE ON DAY 3,4,5 AND 6
     Route: 042
  5. GLUCAGON. [Concomitant]
     Active Substance: GLUCAGON
     Indication: HYPOGLYCAEMIA
     Dosage: AS DIRECTED IN HYPOGLYCEMIC PROTOCOL
     Route: 030
  6. REMDESIVIR. [Interacting]
     Active Substance: REMDESIVIR
     Indication: COVID-19
     Dosage: ONE?TIME DOSE ON DAY 2
     Route: 042
  7. ACETAMINOPHEN. [Concomitant]
     Active Substance: ACETAMINOPHEN
     Indication: PYREXIA
     Dosage: AS NEEDED
     Route: 048
  8. LIDOCAINE. [Concomitant]
     Active Substance: LIDOCAINE
     Indication: ARTHRALGIA
     Dosage: SMALL AMOUNT TOPICALLY EVERY 12 HOURS AS NEEDED
     Route: 061
  9. DEXAMETHASONE. [Suspect]
     Active Substance: DEXAMETHASONE
     Indication: COVID-19
     Dosage: FROM DAY 4?7
     Route: 048
  10. DEXAMETHASONE. [Interacting]
     Active Substance: DEXAMETHASONE
     Indication: PRODUCT USE IN UNAPPROVED INDICATION
  11. DEXTROSE. [Concomitant]
     Active Substance: DEXTROSE
     Indication: HYPOGLYCAEMIA
     Dosage: AS DIRECTED IN HYPOGLYCEMIC PROTOCOL
     Route: 042
  12. SODIUM [Concomitant]
     Active Substance: SODIUM
     Indication: MEDICAL DIET
     Dosage: DURING ADMISSION
  13. BENZONATATE. [Concomitant]
     Active Substance: BENZONATATE
     Indication: COUGH
     Dosage: AS NEEDED
     Route: 048
  14. VITAMIN K [Concomitant]
     Active Substance: PHYTONADIONE
     Indication: PRODUCT USED FOR UNKNOWN INDICATION
  15. WARFARIN [Interacting]
     Active Substance: WARFARIN
     Dosage: RESUMED ON DAY 3, 4 AND 5
     Route: 065
  16. ALBUTEROL. [Concomitant]
     Active Substance: ALBUTEROL
     Indication: WHEEZING
     Dosage: TWO PUFFS (90 MCG PER PUFF) INHALATION EVERY 6 HOURS AND EVERY 2 HOURS AS NEEDED
  17. GLUCOSE LIQUID [Concomitant]
     Indication: HYPOGLYCAEMIA
     Dosage: AS DIRECTED IN HYPOGLYCEMIC PROTOCOL
     Route: 048

REACTIONS (2)
  - Product use in unapproved indication [Unknown]
  - Drug interaction [Unknown]
